FAERS Safety Report 7041215-6 (Version None)
Quarter: 2010Q4

REPORT INFORMATION
  Report Type: 
  Country: None (occurrence: None)
  Receive Date: 20101013
  Receipt Date: 20101012
  Transmission Date: 20110411
  Serious: Yes (Hospitalization)
  Sender: FDA-Public Use
  Company Number: US-BRISTOL-MYERS SQUIBB COMPANY-15330244

PATIENT
  Age: 65 Year
  Sex: Male
  Weight: 64 kg

DRUGS (1)
  1. ERBITUX [Suspect]
     Dosage: HALF A DOSE
     Dates: start: 20101011

REACTIONS (2)
  - AGITATION [None]
  - DISORIENTATION [None]
